FAERS Safety Report 8853037 (Version 1)
Quarter: 2012Q4

REPORT INFORMATION
  Report Type: Report from Study
  Country: BR (occurrence: BR)
  Receive Date: 20121022
  Receipt Date: 20121022
  Transmission Date: 20130627
  Serious: Yes (Other)
  Sender: FDA-Public Use
  Company Number: BR-ROCHE-1147004

PATIENT
  Age: 48 Year
  Sex: Male

DRUGS (4)
  1. TRASTUZUMAB [Suspect]
     Indication: METASTATIC GASTRIC CANCER
     Route: 065
  2. TRASTUZUMAB [Suspect]
     Route: 065
  3. 5-FLUOROURACIL [Concomitant]
  4. OXALIPLATIN [Concomitant]

REACTIONS (2)
  - Therapeutic response decreased [Unknown]
  - Cardiac failure congestive [Unknown]
